FAERS Safety Report 26042563 (Version 1)
Quarter: 2025Q4

REPORT INFORMATION
  Report Type: Spontaneous
  Country: CN (occurrence: CN)
  Receive Date: 20251113
  Receipt Date: 20251113
  Transmission Date: 20260118
  Serious: Yes (Hospitalization)
  Sender: COHERUS
  Company Number: CN-SHANGHAI JUNSHI BIOSCIENCES CO., LTD.-CN2025016462

PATIENT

DRUGS (17)
  1. TORIPALIMAB [Suspect]
     Active Substance: TORIPALIMAB
     Indication: Lung neoplasm malignant
     Dosage: 240 MG, SINGLE
     Route: 041
     Dates: start: 20251030, end: 20251030
  2. TORIPALIMAB [Suspect]
     Active Substance: TORIPALIMAB
     Indication: Metastases to liver
  3. TORIPALIMAB [Suspect]
     Active Substance: TORIPALIMAB
     Indication: Metastases to kidney
  4. TORIPALIMAB [Suspect]
     Active Substance: TORIPALIMAB
     Indication: Prostate cancer
  5. TORIPALIMAB [Suspect]
     Active Substance: TORIPALIMAB
     Indication: Metastases to gastrointestinal tract
  6. ETOPOSIDE [Suspect]
     Active Substance: ETOPOSIDE
     Indication: Lung neoplasm malignant
     Dosage: 125 MG, QD
     Route: 041
     Dates: start: 20251030, end: 20251101
  7. ETOPOSIDE [Suspect]
     Active Substance: ETOPOSIDE
     Indication: Metastases to liver
  8. ETOPOSIDE [Suspect]
     Active Substance: ETOPOSIDE
     Indication: Metastases to kidney
  9. ETOPOSIDE [Suspect]
     Active Substance: ETOPOSIDE
     Indication: Prostate cancer
  10. ETOPOSIDE [Suspect]
     Active Substance: ETOPOSIDE
     Indication: Metastases to gastrointestinal tract
  11. CISPLATIN [Suspect]
     Active Substance: CISPLATIN
     Indication: Lung neoplasm malignant
     Dosage: 100 MG, SINGLE
     Route: 041
     Dates: start: 20251030, end: 20251030
  12. CISPLATIN [Suspect]
     Active Substance: CISPLATIN
     Indication: Metastases to liver
  13. CISPLATIN [Suspect]
     Active Substance: CISPLATIN
     Indication: Metastases to kidney
  14. CISPLATIN [Suspect]
     Active Substance: CISPLATIN
     Indication: Prostate cancer
  15. CISPLATIN [Suspect]
     Active Substance: CISPLATIN
     Indication: Metastases to gastrointestinal tract
  16. SODIUM CHLORIDE [Concomitant]
     Active Substance: SODIUM CHLORIDE
     Indication: Medication dilution
     Dosage: 500 ML, QD
     Route: 041
     Dates: start: 20251030, end: 20251101
  17. SODIUM CHLORIDE [Concomitant]
     Active Substance: SODIUM CHLORIDE
     Indication: Medication dilution
     Dosage: 100 ML, SINGLE
     Route: 041
     Dates: start: 20251030, end: 20251030

REACTIONS (1)
  - Myelosuppression [Unknown]

NARRATIVE: CASE EVENT DATE: 20251108
